FAERS Safety Report 23852333 (Version 6)
Quarter: 2024Q4

REPORT INFORMATION
  Report Type: Spontaneous
  Country: JP (occurrence: JP)
  Receive Date: 20240514
  Receipt Date: 20241007
  Transmission Date: 20250115
  Serious: Yes (Hospitalization, Disabling, Other)
  Sender: ELI LILLY AND CO
  Company Number: JP-ELI_LILLY_AND_COMPANY-JP202405004434

PATIENT
  Age: 75 Year
  Sex: Female
  Weight: 38 kg

DRUGS (7)
  1. RETEVMO [Suspect]
     Active Substance: SELPERCATINIB
     Indication: Lung adenocarcinoma stage IV
     Dosage: 160 MG, BID
     Route: 048
     Dates: start: 20240409, end: 20240507
  2. NESINA [Concomitant]
     Active Substance: ALOGLIPTIN BENZOATE
     Indication: Diabetes mellitus
     Dosage: 25 MG, DAILY
     Route: 048
  3. MIGLITOL [Concomitant]
     Active Substance: MIGLITOL
     Indication: Diabetes mellitus
     Dosage: 50 MG, TID
     Route: 048
  4. NORVASC [Concomitant]
     Active Substance: AMLODIPINE BESYLATE
     Indication: Hypertension
     Dosage: 50 MG, DAILY
     Route: 048
  5. CALCIUM CARBONATE\CHOLECALCIFEROL\MAGNESIUM CARBONATE [Concomitant]
     Active Substance: CALCIUM CARBONATE\CHOLECALCIFEROL\MAGNESIUM CARBONATE
     Indication: Prophylaxis
     Dosage: 2 DOSAGE FORM, DAILY
     Route: 048
     Dates: start: 20240404
  6. URSO [Concomitant]
     Active Substance: URSODIOL
     Dosage: 100 MG, TID
     Route: 048
  7. DENOSUMAB [Concomitant]
     Active Substance: DENOSUMAB
     Indication: Metastases to bone
     Dosage: 230 UG, DAILY
     Route: 048
     Dates: start: 20240404

REACTIONS (9)
  - Acute cholecystitis necrotic [Recovered/Resolved]
  - Malignant neoplasm progression [Unknown]
  - Diarrhoea [Recovered/Resolved]
  - Pleural effusion [Recovered/Resolved]
  - Oedema [Unknown]
  - Hypoalbuminaemia [Unknown]
  - Urinary retention [Recovered/Resolved]
  - Alopecia [Not Recovered/Not Resolved]
  - Klebsiella test positive [Unknown]

NARRATIVE: CASE EVENT DATE: 20240502
